FAERS Safety Report 9285904 (Version 2)
Quarter: 2013Q4

REPORT INFORMATION
  Report Type: Spontaneous
  Country: US (occurrence: US)
  Receive Date: 20130513
  Receipt Date: 20131223
  Transmission Date: 20140711
  Serious: Yes (Hospitalization)
  Sender: FDA-Public Use
  Company Number: US-BAYER-2013-058999

PATIENT
  Age: 43 Year
  Sex: Female

DRUGS (9)
  1. YAZ [Suspect]
     Dosage: UNK
     Dates: start: 2010, end: 2011
  2. YASMIN [Suspect]
     Dosage: UNK
     Dates: start: 2010, end: 2011
  3. AMOXICILLIN [Concomitant]
     Dosage: 500 MG, UNK
     Route: 048
     Dates: start: 20090604
  4. NAPROXEN [Concomitant]
     Dosage: 375 MG, UNK
     Route: 048
     Dates: start: 20090604
  5. ACETAMINOPHEN W/CODEINE [Concomitant]
     Dosage: UNK
     Route: 048
     Dates: start: 20090604
  6. LASIX [Concomitant]
  7. AUGMENTIN [Concomitant]
  8. PANTOPRAZOLE [Concomitant]
  9. NICOTINE [Concomitant]

REACTIONS (9)
  - Myocardial infarction [None]
  - Injury [None]
  - Anxiety [None]
  - Pain [None]
  - Abdominal pain [None]
  - General physical health deterioration [None]
  - Emotional distress [None]
  - Pain [None]
  - Chest pain [None]
